FAERS Safety Report 6426593-0 (Version None)
Quarter: 2009Q4

REPORT INFORMATION
  Report Type: 
  Country: None (occurrence: None)
  Receive Date: 20091016
  Receipt Date: 20090217
  Transmission Date: 20100525
  Serious: Yes (Other)
  Sender: FDA-Public Use
  Company Number: A03200900721

PATIENT
  Age: 36 Year
  Sex: Female

DRUGS (3)
  1. ELOXATIN [Suspect]
     Indication: COLON CANCER
     Dosage: INTRAVENOUS NOS
     Route: 042
     Dates: start: 20090201, end: 20090201
  2. LEUCOVORIN - UNKNOWN - UNIT DOSE: UNKNOWN [Suspect]
     Indication: COLON CANCER
     Dates: start: 20090201, end: 20090201
  3. FLUOROURACIL [Suspect]
     Indication: COLON CANCER
     Dates: start: 20090201, end: 20090201

REACTIONS (2)
  - LIP SWELLING [None]
  - SWOLLEN TONGUE [None]
